FAERS Safety Report 10467051 (Version 2)
Quarter: 2014Q4

REPORT INFORMATION
  Report Type: Spontaneous
  Country: US (occurrence: US)
  Receive Date: 20140922
  Receipt Date: 20141017
  Transmission Date: 20150528
  Serious: Yes (Other)
  Sender: FDA-Public Use
  Company Number: US-BAYER-2014-140791

PATIENT
  Age: 58 Year
  Sex: Male

DRUGS (1)
  1. BAYER GENUINE ASPIRIN [Suspect]
     Active Substance: ASPIRIN
     Indication: ISCHAEMIC HEART DISEASE PROPHYLAXIS
     Dosage: UNK, PRN
     Route: 048

REACTIONS (2)
  - Myocardial infarction [Unknown]
  - Intentional product misuse [None]

NARRATIVE: CASE EVENT DATE: 20140715
